FAERS Safety Report 11768029 (Version 1)
Quarter: 2015Q4

REPORT INFORMATION
  Report Type: Spontaneous
  Country: US (occurrence: US)
  Receive Date: 20151123
  Receipt Date: 20151123
  Transmission Date: 20160304
  Serious: No
  Sender: FDA-Public Use
  Company Number: US-JNJFOC-20151002434

PATIENT
  Age: 81 Year
  Sex: Female
  Weight: 70.31 kg

DRUGS (5)
  1. ASPIRIN UNSPECIFIED [Concomitant]
     Indication: HEADACHE
     Dosage: 2 A DAY??5 DAUS
     Route: 065
     Dates: start: 20150927
  2. ZYRTEC [Suspect]
     Active Substance: CETIRIZINE HYDROCHLORIDE
     Indication: RHINORRHOEA
     Route: 048
     Dates: start: 20150927, end: 20150927
  3. ZYRTEC [Suspect]
     Active Substance: CETIRIZINE HYDROCHLORIDE
     Indication: MULTIPLE ALLERGIES
     Route: 048
     Dates: start: 20150927, end: 20150927
  4. ALL OTHER THERAPEUTICS [Concomitant]
     Active Substance: UNSPECIFIED INGREDIENT
     Indication: MACULAR DEGENERATION
     Dosage: 5 YEARS
     Route: 065
  5. INDERAL [Concomitant]
     Active Substance: PROPRANOLOL HYDROCHLORIDE
     Indication: MIGRAINE
     Dosage: 30 YEARS
     Route: 065

REACTIONS (1)
  - Drug ineffective [Unknown]
